FAERS Safety Report 12140833 (Version 1)
Quarter: 2016Q1

REPORT INFORMATION
  Report Type: Report from Study
  Country: US (occurrence: US)
  Receive Date: 20160303
  Receipt Date: 20160303
  Transmission Date: 20160526
  Serious: Yes (Hospitalization)
  Sender: FDA-Public Use
  Company Number: US-ACTELION-A-NJ2016-132030

PATIENT
  Age: 89 Year
  Sex: Female
  Weight: 57.6 kg

DRUGS (1)
  1. MACITENTAN [Suspect]
     Active Substance: MACITENTAN
     Indication: PULMONARY ARTERIAL HYPERTENSION
     Dosage: 10 MG, QD
     Route: 048
     Dates: start: 20150218

REACTIONS (4)
  - Decreased appetite [Unknown]
  - Blood sodium decreased [Recovering/Resolving]
  - Swelling [Recovering/Resolving]
  - Weight decreased [Unknown]
